FAERS Safety Report 6413467-4 (Version None)
Quarter: 2009Q4

REPORT INFORMATION
  Report Type: 
  Country: None (occurrence: None)
  Receive Date: 20091026
  Receipt Date: 20091021
  Transmission Date: 20100525
  Serious: Yes (Death)
  Sender: FDA-Public Use
  Company Number: CN-AVENTIS-200916579EU

PATIENT
  Age: 48 Year
  Sex: Male

DRUGS (4)
  1. CLEXANE [Suspect]
     Indication: ACUTE CORONARY SYNDROME
     Route: 058
     Dates: start: 20091018, end: 20091018
  2. PLAVIX [Concomitant]
     Indication: ACUTE CORONARY SYNDROME
     Route: 048
     Dates: start: 20091018, end: 20091018
  3. ASPIRIN [Concomitant]
     Indication: ACUTE CORONARY SYNDROME
     Route: 048
     Dates: start: 20091018, end: 20091018
  4. TRADITIONAL CHINESE MEDICINE [Concomitant]
     Indication: ACUTE CORONARY SYNDROME
     Route: 041
     Dates: start: 20091018, end: 20091018

REACTIONS (5)
  - CYANOSIS [None]
  - HEART RATE DECREASED [None]
  - LOSS OF CONSCIOUSNESS [None]
  - RESPIRATORY RATE DECREASED [None]
  - SUDDEN DEATH [None]
